FAERS Safety Report 10915059 (Version 2)
Quarter: 2015Q1

REPORT INFORMATION
  Report Type: Spontaneous
  Country: AT (occurrence: AT)
  Receive Date: 20150315
  Receipt Date: 20150330
  Transmission Date: 20150721
  Serious: Yes (Hospitalization)
  Sender: FDA-Public Use
  Company Number: AT-TEVA-547166ISR

PATIENT
  Age: 59 Year
  Sex: Female

DRUGS (2)
  1. RISPERIDON [Suspect]
     Active Substance: RISPERIDONE
     Indication: ANXIOLYTIC THERAPY
     Dosage: LOW DOSE
  2. RISPERIDON [Suspect]
     Active Substance: RISPERIDONE
     Dosage: DOSE INCREASED

REACTIONS (5)
  - Delirium [Recovered/Resolved]
  - Psychomotor hyperactivity [Recovered/Resolved]
  - Daydreaming [Recovered/Resolved]
  - Hyponatraemia [Recovered/Resolved]
  - Gaze palsy [Recovered/Resolved]
